FAERS Safety Report 5671862-5 (Version None)
Quarter: 2008Q1

REPORT INFORMATION
  Report Type: 
  Country: None (occurrence: None)
  Receive Date: 20080317
  Receipt Date: 20080317
  Transmission Date: 20080703
  Serious: Yes (Disabling)
  Sender: FDA-Public Use
  Company Number: None

PATIENT
  Age: 66 Year
  Sex: Female
  Weight: 45.8133 kg

DRUGS (3)
  1. FOSAMAX [Suspect]
     Indication: OSTEOPOROSIS
     Dosage: 70 MG PILL  ONE PILL PER WEEK  PO
     Route: 048
     Dates: start: 20001001, end: 20010831
  2. TAMOXIFEN CITRATE [Concomitant]
  3. QUININE [Concomitant]

REACTIONS (2)
  - ABDOMINAL PAIN [None]
  - DYSPHAGIA [None]
